FAERS Safety Report 11774354 (Version 2)
Quarter: 2015Q4

REPORT INFORMATION
  Report Type: Spontaneous
  Country: CA (occurrence: CA)
  Receive Date: 20151124
  Receipt Date: 20151229
  Transmission Date: 20160304
  Serious: Yes (Hospitalization)
  Sender: FDA-Public Use
  Company Number: CA-CONCORDIA PHARMACEUTICALS INC.-CO-PL-CA-2015-374

PATIENT
  Sex: Female

DRUGS (4)
  1. METHOTREXATE [Concomitant]
     Active Substance: METHOTREXATE
     Dates: start: 201411
  2. LEFLUNOMIDE. [Concomitant]
     Active Substance: LEFLUNOMIDE
     Dates: start: 2011
  3. XELJANZ [Concomitant]
     Active Substance: TOFACITINIB CITRATE
     Dates: start: 20150326
  4. PLAQUENIL [Suspect]
     Active Substance: HYDROXYCHLOROQUINE SULFATE
     Indication: PRODUCT USED FOR UNKNOWN INDICATION
     Route: 065

REACTIONS (4)
  - Joint swelling [Unknown]
  - Pneumonia [Recovered/Resolved]
  - Arthralgia [Unknown]
  - Joint stiffness [Unknown]
